FAERS Safety Report 21093986 (Version 1)
Quarter: 2022Q3

REPORT INFORMATION
  Report Type: Report from Study
  Country: US (occurrence: US)
  Receive Date: 20220718
  Receipt Date: 20220718
  Transmission Date: 20221026
  Serious: Yes (Other)
  Sender: FDA-Public Use
  Company Number: US-ABBVIE-22K-163-4469295-00

PATIENT
  Sex: Male

DRUGS (1)
  1. VENCLEXTA [Suspect]
     Active Substance: VENETOCLAX
     Indication: Chronic lymphocytic leukaemia
     Route: 048
     Dates: start: 201912

REACTIONS (5)
  - Intestinal obstruction [Unknown]
  - Gastrointestinal scarring [Unknown]
  - Large intestine polyp [Unknown]
  - Musculoskeletal disorder [Unknown]
  - Feeling abnormal [Unknown]
